FAERS Safety Report 14098328 (Version 2)
Quarter: 2017Q4

REPORT INFORMATION
  Report Type: Spontaneous
  Country: US (occurrence: US)
  Receive Date: 20171016
  Receipt Date: 20171018
  Transmission Date: 20180321
  Serious: No
  Sender: FDA-Public Use
  Company Number: US-AMGEN-USASP2017049211

PATIENT
  Age: 78 Year
  Sex: Female

DRUGS (6)
  1. CENTRUM SILVER [Concomitant]
     Active Substance: MINERALS\VITAMINS
  2. MAGNESIUM COMPLEX [Concomitant]
     Dosage: UNK UNK, AS NECESSARY
  3. PROLIA [Suspect]
     Active Substance: DENOSUMAB
     Indication: OSTEOPOROSIS POSTMENOPAUSAL
     Dosage: 60 MG, Q6MO
     Route: 065
     Dates: start: 201610
  4. VITAMIN D [Concomitant]
     Active Substance: CHOLECALCIFEROL
  5. CALTRATE 600+D3 PLUS MINERALS [Concomitant]
     Dosage: 600
  6. CALCIUM [Concomitant]
     Active Substance: CALCIUM

REACTIONS (2)
  - Tooth infection [Unknown]
  - Tooth disorder [Not Recovered/Not Resolved]

NARRATIVE: CASE EVENT DATE: 20170626
